FAERS Safety Report 14030329 (Version 2)
Quarter: 2017Q4

REPORT INFORMATION
  Report Type: Spontaneous
  Country: US (occurrence: US)
  Receive Date: 20171002
  Receipt Date: 20171012
  Transmission Date: 20180321
  Serious: Yes (Other)
  Sender: FDA-Public Use
  Company Number: US-ACORDA-ACO_139775_2017

PATIENT
  Sex: Female

DRUGS (10)
  1. BUPROPION. [Concomitant]
     Active Substance: BUPROPION
     Indication: PRODUCT USED FOR UNKNOWN INDICATION
     Dosage: UNK
     Route: 065
  2. VITAMIN D3 [Concomitant]
     Active Substance: CHOLECALCIFEROL
     Indication: PRODUCT USED FOR UNKNOWN INDICATION
     Dosage: UNK
     Route: 065
  3. AMPYRA [Suspect]
     Active Substance: DALFAMPRIDINE
     Indication: GAIT DISTURBANCE
     Dosage: 10 MG, Q 12 HRS
     Route: 065
     Dates: start: 20170607
  4. BACLOFEN. [Interacting]
     Active Substance: BACLOFEN
     Indication: MUSCLE SPASMS
     Dosage: UNK
     Route: 065
  5. ANTIHYPERTENSIVES [Interacting]
     Active Substance: UNSPECIFIED INGREDIENT
     Indication: PRODUCT USED FOR UNKNOWN INDICATION
     Dosage: UNK
     Route: 065
  6. LABETALOL [Concomitant]
     Active Substance: LABETALOL\LABETALOL HYDROCHLORIDE
     Indication: PRODUCT USED FOR UNKNOWN INDICATION
     Dosage: UNK
     Route: 065
  7. ARMOUR THYROID [Concomitant]
     Active Substance: THYROID, PORCINE
     Indication: PRODUCT USED FOR UNKNOWN INDICATION
     Dosage: UNK
     Route: 065
  8. PREDNISONE. [Concomitant]
     Active Substance: PREDNISONE
     Indication: PRODUCT USED FOR UNKNOWN INDICATION
     Dosage: UNK
     Route: 065
  9. TYSABRI [Suspect]
     Active Substance: NATALIZUMAB
     Indication: MULTIPLE SCLEROSIS
     Dosage: 300 MG (INFUSED OVER 1 HOUR), MONTHLY
     Route: 042
     Dates: start: 20160520, end: 20170817
  10. ARMODAFINIL. [Concomitant]
     Active Substance: ARMODAFINIL
     Indication: MEMORY IMPAIRMENT
     Dosage: UNK
     Route: 065

REACTIONS (28)
  - Muscle twitching [Unknown]
  - Cognitive disorder [Not Recovered/Not Resolved]
  - Temperature intolerance [Not Recovered/Not Resolved]
  - Depression [Not Recovered/Not Resolved]
  - Fatigue [Not Recovered/Not Resolved]
  - Drug intolerance [Unknown]
  - Anxiety [Not Recovered/Not Resolved]
  - Condition aggravated [Not Recovered/Not Resolved]
  - Haemoglobin decreased [Unknown]
  - Haematocrit decreased [Unknown]
  - Mean cell haemoglobin decreased [Unknown]
  - Loss of consciousness [Recovered/Resolved]
  - Potentiating drug interaction [Unknown]
  - Dehydration [Unknown]
  - Stress [Not Recovered/Not Resolved]
  - Vulvovaginal dryness [Unknown]
  - Feeling abnormal [Unknown]
  - Bladder dysfunction [Not Recovered/Not Resolved]
  - Asthenia [Not Recovered/Not Resolved]
  - Headache [Not Recovered/Not Resolved]
  - Dry mouth [Unknown]
  - Muscle spasticity [Not Recovered/Not Resolved]
  - Thyroid disorder [Not Recovered/Not Resolved]
  - Mean cell volume decreased [Unknown]
  - Fall [Unknown]
  - Neuralgia [Unknown]
  - Vitamin D deficiency [Not Recovered/Not Resolved]
  - Memory impairment [Not Recovered/Not Resolved]
